FAERS Safety Report 6964238-1 (Version None)
Quarter: 2010Q3

REPORT INFORMATION
  Report Type: 
  Country: None (occurrence: None)
  Receive Date: 20100903
  Receipt Date: 20100826
  Transmission Date: 20110219
  Serious: Yes (Hospitalization)
  Sender: FDA-Public Use
  Company Number: 165908

PATIENT
  Age: 51 Year
  Sex: Female
  Weight: 84 kg

DRUGS (4)
  1. AVONEX [Suspect]
     Indication: MULTIPLE SCLEROSIS
     Route: 030
     Dates: start: 20000101
  2. ZANAFLEX [Concomitant]
     Indication: MULTIPLE SCLEROSIS
  3. SYNTHROID [Concomitant]
     Indication: THYROID DISORDER
  4. AMANTADINE [Concomitant]
     Indication: MULTIPLE SCLEROSIS

REACTIONS (8)
  - DECUBITUS ULCER [None]
  - FALL [None]
  - ILL-DEFINED DISORDER [None]
  - INCREASED TENDENCY TO BRUISE [None]
  - LOSS OF CONTROL OF LEGS [None]
  - NERVE INJURY [None]
  - REFLUX GASTRITIS [None]
  - SCOLIOSIS [None]
